FAERS Safety Report 20955438 (Version 1)
Quarter: 2022Q2

REPORT INFORMATION
  Report Type: Spontaneous
  Country: US (occurrence: None)
  Receive Date: 20220614
  Receipt Date: 20220614
  Transmission Date: 20220721
  Serious: No
  Sender: FDA-Public Use
  Company Number: US-MDD US Operations-MDD202110-002040

PATIENT
  Age: 72 Year
  Sex: Female

DRUGS (4)
  1. APOKYN [Suspect]
     Active Substance: APOMORPHINE HYDROCHLORIDE
     Indication: Parkinson^s disease
     Route: 058
  2. APOKYN [Suspect]
     Active Substance: APOMORPHINE HYDROCHLORIDE
     Dosage: UPTO 0.2 ML
     Route: 058
  3. STALEVO [Concomitant]
     Active Substance: CARBIDOPA\ENTACAPONE\LEVODOPA
     Indication: Parkinson^s disease
  4. PLAVIX [Concomitant]
     Active Substance: CLOPIDOGREL BISULFATE
     Indication: Transient ischaemic attack

REACTIONS (6)
  - Tremor [Unknown]
  - Sinusitis [Unknown]
  - Influenza like illness [Unknown]
  - Disturbance in attention [Unknown]
  - Vision blurred [Unknown]
  - Dizziness [Unknown]
